FAERS Safety Report 6383085-5 (Version None)
Quarter: 2009Q3

REPORT INFORMATION
  Report Type: 
  Country: None (occurrence: None)
  Receive Date: 20090928
  Receipt Date: 20090917
  Transmission Date: 20100115
  Serious: Yes (Hospitalization)
  Sender: FDA-Public Use
  Company Number: 2009-03163

PATIENT
  Age: 79 Year
  Sex: Male
  Weight: 68.3 kg

DRUGS (11)
  1. VELCADE [Suspect]
     Indication: MULTIPLE MYELOMA
     Dosage: 1.3 MG/M2, IV BOLUS
     Route: 040
     Dates: start: 20090317, end: 20090731
  2. MELPHALAN HYDROCHLORIDE [Suspect]
     Indication: MULTIPLE MYELOMA
     Dosage: 9 MG/M2, ORAL
     Route: 048
     Dates: start: 20090317, end: 20090724
  3. PREDNISONE [Suspect]
     Indication: MULTIPLE MYELOMA
     Dosage: 60 MG/M2, ORAL
     Route: 048
     Dates: start: 20090317, end: 20090724
  4. ESOMEPRAZOLE MAGNESIUM [Concomitant]
  5. FINASTERIDE [Concomitant]
  6. MULTIVITAMIN [Concomitant]
  7. SODIUM CHLORIDE 0.9% [Concomitant]
  8. ACETAMINOPHEN [Concomitant]
  9. INSULIN ASPART (INSULIN ASPART) [Concomitant]
  10. DOCUSATE SODIUM (DOCUSATE SODIUM) [Concomitant]
  11. SENNA (SENNA) [Concomitant]

REACTIONS (14)
  - CERVICAL SPINAL STENOSIS [None]
  - INTERVERTEBRAL DISC PROTRUSION [None]
  - INTERVERTEBRAL DISC SPACE NARROWING [None]
  - METASTASES TO SPINE [None]
  - MUSCULAR WEAKNESS [None]
  - NEUROPATHY PERIPHERAL [None]
  - RIB FRACTURE [None]
  - SPINAL COMPRESSION FRACTURE [None]
  - SPINAL CORD DISORDER [None]
  - SPINAL HAEMANGIOMA [None]
  - SPINAL OSTEOARTHRITIS [None]
  - SPONDYLOLISTHESIS [None]
  - THYROID MASS [None]
  - TRANSIENT ISCHAEMIC ATTACK [None]
